FAERS Safety Report 4837999-5 (Version None)
Quarter: 2005Q4

REPORT INFORMATION
  Report Type: 
  Country: None (occurrence: None)
  Receive Date: 20051123
  Receipt Date: 20051123
  Transmission Date: 20060501
  Serious: Yes (Death)
  Sender: FDA-Public Use
  Company Number: None

PATIENT
  Sex: Female
  Weight: 5.6 kg

DRUGS (15)
  1. OCTREOTIDE ACETATE [Suspect]
     Indication: GASTROINTESTINAL MOTILITY DISORDER
     Dosage: 6 MCG Q 12 HR IV
     Route: 042
     Dates: start: 20051018, end: 20051024
  2. ERYTHROMYCIN ETHYLSUCCINATE [Suspect]
     Indication: GASTROINTESTINAL MOTILITY DISORDER
     Dosage: 30 MG Q 8 HR PO
     Route: 048
     Dates: start: 20051018, end: 20051030
  3. ZANTAC [Concomitant]
  4. IRON [Concomitant]
  5. DEXTRAN [Concomitant]
  6. LEVOCANITINE IN TPN [Concomitant]
  7. NEOCATE WITH IRON [Concomitant]
  8. ALDACTAZIDE [Concomitant]
  9. BUDESONIDE [Concomitant]
  10. ACTIGALL [Concomitant]
  11. VITAMIN D [Concomitant]
  12. PHENOBARB [Concomitant]
  13. NAPO4 [Concomitant]
  14. ALBUTEROL [Concomitant]
  15. IPATROPIUM [Concomitant]

REACTIONS (3)
  - BLOOD BILIRUBIN INCREASED [None]
  - HEPATIC ENZYME INCREASED [None]
  - HEPATIC FAILURE [None]
